FAERS Safety Report 11858481 (Version 1)
Quarter: 2015Q4

REPORT INFORMATION
  Report Type: Spontaneous
  Country: US (occurrence: US)
  Receive Date: 20151222
  Receipt Date: 20151222
  Transmission Date: 20160305
  Serious: Yes (Other)
  Sender: FDA-Public Use
  Company Number: US-BEH-2015056914

PATIENT
  Sex: Female
  Weight: 51 kg

DRUGS (36)
  1. ACETAMINOPHEN. [Concomitant]
     Active Substance: ACETAMINOPHEN
  2. METAXALONE. [Concomitant]
     Active Substance: METAXALONE
  3. RITALIN [Concomitant]
     Active Substance: METHYLPHENIDATE HYDROCHLORIDE
  4. SYSTANE (HYPROMELLOSE 2910 (4000 MPA.S)) [Concomitant]
     Active Substance: HYPROMELLOSE 2910 (4000 MPA.S)
  5. PERCOCET [Concomitant]
     Active Substance: ACETAMINOPHEN\OXYCODONE HYDROCHLORIDE
  6. UROXATRAL [Concomitant]
     Active Substance: ALFUZOSIN HYDROCHLORIDE
  7. VITAMIN D2 [Concomitant]
     Active Substance: ERGOCALCIFEROL
  8. FROVA [Concomitant]
     Active Substance: FROVATRIPTAN SUCCINATE
  9. VAGIFEM [Concomitant]
     Active Substance: ESTRADIOL
  10. DIPHENHYDRAMINE. [Concomitant]
     Active Substance: DIPHENHYDRAMINE
  11. LMX [Concomitant]
     Active Substance: LIDOCAINE
  12. MEDROL [Concomitant]
     Active Substance: METHYLPREDNISOLONE
  13. BOTOX [Concomitant]
     Active Substance: ONABOTULINUMTOXINA
  14. OMEPRAZOLE. [Concomitant]
     Active Substance: OMEPRAZOLE
  15. RESTASIS [Concomitant]
     Active Substance: CYCLOSPORINE
  16. CYMBALTA [Concomitant]
     Active Substance: DULOXETINE HYDROCHLORIDE
  17. GABAPENTIN. [Concomitant]
     Active Substance: GABAPENTIN
  18. MAGNESIUM [Concomitant]
     Active Substance: MAGNESIUM
  19. FISH OIL [Concomitant]
     Active Substance: FISH OIL
  20. HIZENTRA [Suspect]
     Active Substance: HUMAN IMMUNOGLOBULIN G
     Indication: HYPOGAMMAGLOBULINAEMIA
     Route: 058
     Dates: start: 20130606
  21. HIZENTRA [Suspect]
     Active Substance: HUMAN IMMUNOGLOBULIN G
     Route: 058
     Dates: start: 20130606
  22. ACIDOPHILUS [Concomitant]
     Active Substance: LACTOBACILLUS ACIDOPHILUS
  23. FOLIC ACID. [Concomitant]
     Active Substance: FOLIC ACID
  24. EPIPEN [Concomitant]
     Active Substance: EPINEPHRINE
  25. POTASSIUM CHLORIDE. [Concomitant]
     Active Substance: POTASSIUM CHLORIDE
  26. DIAZEPAM. [Concomitant]
     Active Substance: DIAZEPAM
  27. NASONEX [Concomitant]
     Active Substance: MOMETASONE FUROATE
  28. NORVASC [Concomitant]
     Active Substance: AMLODIPINE BESYLATE
  29. COLCRYS [Concomitant]
     Active Substance: COLCHICINE
  30. PANTOPRAZOLE SODIUM. [Concomitant]
     Active Substance: PANTOPRAZOLE SODIUM
  31. ENBREL [Concomitant]
     Active Substance: ETANERCEPT
  32. RANITIDINE [Concomitant]
     Active Substance: RANITIDINE\RANITIDINE HYDROCHLORIDE
  33. MECLIZINE HCL [Concomitant]
     Active Substance: MECLIZINE HYDROCHLORIDE
  34. TOPAMAX [Concomitant]
     Active Substance: TOPIRAMATE
  35. METHOTREXATE [Concomitant]
     Active Substance: METHOTREXATE
  36. PROMETHAZINE [Concomitant]
     Active Substance: PROMETHAZINE\PROMETHAZINE HYDROCHLORIDE

REACTIONS (2)
  - Lung infection [Unknown]
  - Drug dose omission [Unknown]
